FAERS Safety Report 17039607 (Version 3)
Quarter: 2022Q1

REPORT INFORMATION
  Report Type: Report from Study
  Country: NL (occurrence: NL)
  Receive Date: 20191115
  Receipt Date: 20220104
  Transmission Date: 20220423
  Serious: Yes (Life-Threatening)
  Sender: FDA-Public Use
  Company Number: NL-EXELIXIS-XL18419025189

PATIENT
  Age: 70 Year
  Sex: Male
  Weight: 49 kg

DRUGS (8)
  1. CABOZANTINIB [Suspect]
     Active Substance: CABOZANTINIB
     Indication: Salivary gland cancer
     Dosage: 60 MG, QD
     Route: 048
  2. CABOZANTINIB [Suspect]
     Active Substance: CABOZANTINIB
     Dosage: 40 MG, QD
     Route: 048
     Dates: start: 2019, end: 20191024
  3. FUSIDINEZUUR [Concomitant]
  4. GLICLAZIDE [Concomitant]
     Active Substance: GLICLAZIDE
  5. INDAPAMIDE [Concomitant]
     Active Substance: INDAPAMIDE
  6. Levomenthol;Melaleuca leucadendra essential oil;Melaleuca viridiflora [Concomitant]
  7. LATANOPROST [Concomitant]
     Active Substance: LATANOPROST
  8. BARNIDIPINE [Concomitant]
     Active Substance: BARNIDIPINE

REACTIONS (1)
  - Skin ulcer [Recovering/Resolving]

NARRATIVE: CASE EVENT DATE: 20191024
